FAERS Safety Report 13869141 (Version 1)
Quarter: 2017Q3

REPORT INFORMATION
  Report Type: Spontaneous
  Country: US (occurrence: US)
  Receive Date: 20170815
  Receipt Date: 20170815
  Transmission Date: 20171127
  Serious: Yes (Other)
  Sender: FDA-Public Use
  Company Number: US-ELI_LILLY_AND_COMPANY-US201708002423

PATIENT
  Sex: Male

DRUGS (6)
  1. HUMALOG [Suspect]
     Active Substance: INSULIN LISPRO
     Indication: TYPE 2 DIABETES MELLITUS
     Dosage: 8 U, EACH MORNING
     Route: 065
     Dates: start: 2010
  2. HUMALOG [Suspect]
     Active Substance: INSULIN LISPRO
     Dosage: 12 U, DAILY
     Route: 065
     Dates: start: 2010
  3. LANTUS [Concomitant]
     Active Substance: INSULIN GLARGINE
     Indication: PRODUCT USED FOR UNKNOWN INDICATION
  4. HUMALOG [Suspect]
     Active Substance: INSULIN LISPRO
     Dosage: 12 U, DAILY
     Route: 065
  5. PREVACID [Concomitant]
     Active Substance: LANSOPRAZOLE
     Indication: GASTROINTESTINAL DISORDER
  6. HUMALOG [Suspect]
     Active Substance: INSULIN LISPRO
     Dosage: 8 U, EACH MORNING
     Route: 065

REACTIONS (15)
  - Renal cancer [Unknown]
  - Cerebrovascular accident [Unknown]
  - Nerve injury [Unknown]
  - Peripheral swelling [Unknown]
  - Immune system disorder [Unknown]
  - Pulmonary embolism [Unknown]
  - Diabetic retinopathy [Unknown]
  - Sensory loss [Unknown]
  - Joint swelling [Unknown]
  - Weight increased [Unknown]
  - Ankle fracture [Unknown]
  - Muscle atrophy [Unknown]
  - Antiphospholipid antibodies [Unknown]
  - Fall [Unknown]
  - Thrombosis [Unknown]

NARRATIVE: CASE EVENT DATE: 2012
